FAERS Safety Report 7297822-9 (Version None)
Quarter: 2011Q1

REPORT INFORMATION
  Report Type: 
  Country: None (occurrence: None)
  Receive Date: 20110217
  Receipt Date: 20110211
  Transmission Date: 20110831
  Serious: Yes (Hospitalization)
  Sender: FDA-Public Use
  Company Number: FR-JNJFOC-20110204153

PATIENT
  Sex: Male

DRUGS (7)
  1. NEXIUM [Concomitant]
  2. REOPRO [Suspect]
     Indication: ILL-DEFINED DISORDER
     Dosage: FROM 5:30 PM TO 5:00 AM
     Route: 042
  3. COVERSYL [Concomitant]
  4. TAHOR [Concomitant]
  5. PLAVIX [Concomitant]
  6. ASPIRIN [Concomitant]
  7. CARVEDILOL [Concomitant]

REACTIONS (6)
  - CARDIAC DISORDER [None]
  - URTICARIA [None]
  - BLOOD PRESSURE INCREASED [None]
  - GENERALISED ERYTHEMA [None]
  - HYPERSENSITIVITY [None]
  - FACE OEDEMA [None]
